FAERS Safety Report 23281734 (Version 1)
Quarter: 2023Q4

REPORT INFORMATION
  Report Type: Spontaneous
  Country: JP (occurrence: JP)
  Receive Date: 20231211
  Receipt Date: 20231211
  Transmission Date: 20240110
  Serious: Yes (Death, Hospitalization, Other)
  Sender: FDA-Public Use
  Company Number: JP-GILEAD-2023-0653865

PATIENT
  Age: 35 Year
  Sex: Male

DRUGS (2)
  1. BIKTARVY [Suspect]
     Active Substance: BICTEGRAVIR SODIUM\EMTRICITABINE\TENOFOVIR ALAFENAMIDE FUMARATE
     Indication: HIV infection
     Dosage: UNK
     Route: 065
  2. DOXORUBICIN HYDROCHLORIDE [Concomitant]
     Active Substance: DOXORUBICIN HYDROCHLORIDE
     Indication: Kaposi^s sarcoma
     Dosage: UNK

REACTIONS (5)
  - Death [Fatal]
  - Castleman^s disease [Unknown]
  - Kaposi sarcoma inflammatory cytokine syndrome [Unknown]
  - Pulmonary haemorrhage [Unknown]
  - Hepatic haemorrhage [Unknown]
